FAERS Safety Report 22758447 (Version 3)
Quarter: 2024Q1

REPORT INFORMATION
  Report Type: Report from Study
  Country: CA (occurrence: CA)
  Receive Date: 20230727
  Receipt Date: 20240318
  Transmission Date: 20240409
  Serious: Yes (Other)
  Sender: FDA-Public Use
  Company Number: CA-BEH-2023160853

PATIENT
  Age: 70 Year
  Sex: Female
  Weight: 72.6 kg

DRUGS (25)
  1. HIZENTRA [Suspect]
     Active Substance: HUMAN IMMUNOGLOBULIN G
     Indication: Primary immunodeficiency syndrome
     Dosage: 9 GRAM, QW
     Route: 065
     Dates: start: 20230702
  2. HIZENTRA [Suspect]
     Active Substance: HUMAN IMMUNOGLOBULIN G
     Dosage: 5 GRAM
     Route: 065
     Dates: start: 20230702
  3. HIZENTRA [Suspect]
     Active Substance: HUMAN IMMUNOGLOBULIN G
     Dosage: UNK
     Route: 065
  4. HIZENTRA [Suspect]
     Active Substance: HUMAN IMMUNOGLOBULIN G
     Dosage: UNK
     Route: 065
  5. ALLOPURINOL [Concomitant]
     Active Substance: ALLOPURINOL
  6. CLONAZEPAM [Concomitant]
     Active Substance: CLONAZEPAM
  7. SPIRIVA RESPIMAT [Concomitant]
     Active Substance: TIOTROPIUM BROMIDE
  8. DICLOFENAC [Concomitant]
     Active Substance: DICLOFENAC
     Dosage: UNK, PRN
  9. CHLORHEXIDINE [Concomitant]
     Active Substance: CHLORHEXIDINE\CHLORHEXIDINE GLUCONATE
  10. ALBUTEROL [Concomitant]
     Active Substance: ALBUTEROL
  11. CEFIXIME [Concomitant]
     Active Substance: CEFIXIME
  12. COLLAGEN [Concomitant]
     Active Substance: COLLAGEN
  13. LIVER HEALTH [Concomitant]
  14. D3 VITAMINS [Concomitant]
  15. VITAMIN C [Concomitant]
     Active Substance: ASCORBIC ACID
  16. HERBALS\TURMERIC [Concomitant]
     Active Substance: HERBALS\TURMERIC
  17. MAGNESIUM [Concomitant]
     Active Substance: MAGNESIUM
  18. PROBIOTICS NOS [Concomitant]
     Active Substance: PROBIOTICS NOS
  19. GLUCOSAMINE [Concomitant]
     Active Substance: GLUCOSAMINE
  20. TOTAL RESTORE [Concomitant]
  21. SYSTANE (HYPROMELLOSE 2910 (4000 MPA.S)) [Concomitant]
     Active Substance: HYPROMELLOSE 2910 (4000 MPA.S)
  22. DIOVAL [Concomitant]
  23. AERIUS (DESLORATADINE) [Concomitant]
     Active Substance: DESLORATADINE
     Indication: Premedication
     Dosage: 2 DOSAGE FORM
  24. TECNAL [Concomitant]
     Indication: Premedication
     Dosage: 2 DOSAGE FORM
  25. GRAVOL [Concomitant]
     Active Substance: DIMENHYDRINATE
     Indication: Premedication
     Dosage: 1 DOSAGE FORM

REACTIONS (17)
  - Infusion site urticaria [Unknown]
  - Cough [Unknown]
  - Asthma [Unknown]
  - Dyspnoea [Unknown]
  - Infusion site inflammation [Unknown]
  - Erythema [Unknown]
  - Pruritus [Unknown]
  - Pain [Unknown]
  - Swelling [Unknown]
  - Pain [Unknown]
  - Infusion site bruising [Unknown]
  - Dermatitis contact [Unknown]
  - Fibromyalgia [Unknown]
  - Pain threshold decreased [Unknown]
  - Haemorrhage [Unknown]
  - Inadequate aseptic technique in use of product [Unknown]
  - Infusion site pain [Unknown]

NARRATIVE: CASE EVENT DATE: 20230702
